FAERS Safety Report 7207767-8 (Version None)
Quarter: 2011Q1

REPORT INFORMATION
  Report Type: 
  Country: None (occurrence: None)
  Receive Date: 20110103
  Receipt Date: 20101220
  Transmission Date: 20110831
  Serious: Yes (Death, Hospitalization)
  Sender: FDA-Public Use
  Company Number: US-MYLANLABS-2010S1023528

PATIENT
  Age: 50 Year
  Sex: Male

DRUGS (2)
  1. WARFARIN [Suspect]
     Indication: ANTICOAGULANT THERAPY
     Route: 065
     Dates: end: 20070801
  2. PARICALCITOL [Concomitant]
     Route: 065
     Dates: end: 20070301

REACTIONS (3)
  - CELLULITIS [None]
  - SKIN NECROSIS [None]
  - VASCULAR CALCIFICATION [None]
